FAERS Safety Report 17161792 (Version 1)
Quarter: 2019Q4

REPORT INFORMATION
  Report Type: Report from Study
  Country: None (occurrence: SI)
  Receive Date: 20191217
  Receipt Date: 20191217
  Transmission Date: 20200122
  Serious: Yes (Other)
  Sender: FDA-Public Use
  Company Number: SI-ABBVIE-19K-261-3193055-00

PATIENT
  Age: 78 Year
  Sex: Male

DRUGS (1)
  1. DUODOPA [Suspect]
     Active Substance: CARBIDOPA\LEVODOPA
     Indication: PARKINSON^S DISEASE
     Route: 050
     Dates: start: 201111

REACTIONS (3)
  - Fall [Recovered/Resolved]
  - Tooth fracture [Recovered/Resolved]
  - Wound [Unknown]

NARRATIVE: CASE EVENT DATE: 201910
